FAERS Safety Report 17722852 (Version 2)
Quarter: 2020Q3

REPORT INFORMATION
  Report Type: Spontaneous
  Country: US (occurrence: US)
  Receive Date: 20200429
  Receipt Date: 20200828
  Transmission Date: 20201102
  Serious: Yes (Hospitalization)
  Sender: FDA-Public Use
  Company Number: US-GLOBAL BLOOD THERAPEUTICS INC-US-GBT-20-00791

PATIENT
  Age: 53 Year
  Sex: Male

DRUGS (2)
  1. OXBRYTA [Suspect]
     Active Substance: VOXELOTOR
     Indication: SICKLE CELL ANAEMIA WITH CRISIS
     Route: 048
     Dates: start: 20200319, end: 2020
  2. OXBRYTA [Suspect]
     Active Substance: VOXELOTOR
     Route: 048
     Dates: start: 2020

REACTIONS (9)
  - Therapy cessation [Unknown]
  - Coronavirus infection [Unknown]
  - Product dose omission issue [Unknown]
  - Abdominal pain upper [Unknown]
  - Sickle cell anaemia with crisis [Unknown]
  - Nausea [Unknown]
  - Sickle cell anaemia with crisis [Unknown]
  - Intensive care [Unknown]
  - Near death experience [Unknown]

NARRATIVE: CASE EVENT DATE: 2020
